FAERS Safety Report 8936698 (Version 1)
Quarter: 2012Q4

REPORT INFORMATION
  Report Type: 
  Country: AT (occurrence: AT)
  Receive Date: 20121130
  Receipt Date: 20121130
  Transmission Date: 20130627
  Serious: Yes (Life-Threatening, Hospitalization)
  Sender: FDA-Public Use
  Company Number: AT-ROCHE-1158628

PATIENT
  Age: 54 Year
  Sex: Male
  Weight: 100 kg

DRUGS (1)
  1. XELODA [Suspect]
     Indication: CHEMOTHERAPY
     Route: 048
     Dates: start: 20120801, end: 20120804

REACTIONS (4)
  - Cardiac failure [Recovered/Resolved]
  - Cardiomyopathy acute [Recovered/Resolved]
  - Left ventricular dysfunction [Recovered/Resolved]
  - Acute coronary syndrome [Recovered/Resolved]
